FAERS Safety Report 21699193 (Version 5)
Quarter: 2023Q1

REPORT INFORMATION
  Report Type: Report from Study
  Country: US (occurrence: US)
  Receive Date: 20221208
  Receipt Date: 20230313
  Transmission Date: 20230418
  Serious: Yes (Other)
  Sender: FDA-Public Use
  Company Number: US-002147023-NVSC2022US284848

PATIENT
  Sex: Female

DRUGS (4)
  1. TASIGNA [Suspect]
     Active Substance: NILOTINIB
     Indication: Product used for unknown indication
     Dosage: UNK
     Route: 048
     Dates: start: 20221128
  2. TASIGNA [Suspect]
     Active Substance: NILOTINIB
     Dosage: 1 DOSAGE FORM, QD
     Route: 048
  3. TASIGNA [Suspect]
     Active Substance: NILOTINIB
     Dosage: 3 DOSAGE FORM, QD
     Route: 048
  4. TASIGNA [Suspect]
     Active Substance: NILOTINIB
     Dosage: UNK (1 PILL IN AM AND 1 PILL IN PM)
     Route: 065

REACTIONS (13)
  - Pneumonia fungal [Unknown]
  - Eructation [Unknown]
  - Wound [Unknown]
  - Electric shock [Unknown]
  - Blood potassium decreased [Unknown]
  - Swelling [Unknown]
  - Heart rate increased [Recovered/Resolved with Sequelae]
  - Dyspnoea [Unknown]
  - Pain in extremity [Unknown]
  - Abdominal discomfort [Unknown]
  - Platelet count decreased [Unknown]
  - Peripheral swelling [Unknown]
  - Erythema [Unknown]
